FAERS Safety Report 12340043 (Version 2)
Quarter: 2016Q2

REPORT INFORMATION
  Report Type: Spontaneous
  Country: SE (occurrence: SE)
  Receive Date: 20160506
  Receipt Date: 20160601
  Transmission Date: 20160815
  Serious: Yes (Other)
  Sender: FDA-Public Use
  Company Number: SE-ACCORD-040052

PATIENT
  Age: 57 Year
  Sex: Female
  Weight: 64 kg

DRUGS (6)
  1. BETAMETHASONE. [Concomitant]
     Active Substance: BETAMETHASONE
     Indication: PREMEDICATION
     Route: 048
     Dates: start: 20160310, end: 20160311
  2. FOLACIN [Concomitant]
     Active Substance: FOLIC ACID
  3. ALIMTA [Suspect]
     Active Substance: PEMETREXED DISODIUM
     Indication: PRODUCT USED FOR UNKNOWN INDICATION
     Dosage: 4TH REGIMEN ON 10-MAR-2016
  4. METOPROLOL. [Concomitant]
     Active Substance: METOPROLOL
     Indication: HYPERTENSION
     Route: 048
     Dates: start: 20140903
  5. CISPLATIN ACCORD [Suspect]
     Active Substance: CISPLATIN
     Indication: NON-SMALL CELL LUNG CANCER
     Dosage: 4TH REGIMEN ON 10-MAR-2016
     Route: 042
     Dates: start: 20160128
  6. HYDROCHLOROTHIAZIDE/LOSARTAN POTASSIUM [Concomitant]
     Dosage: 100MG/25MG X 1
     Route: 048

REACTIONS (6)
  - Balance disorder [Not Recovered/Not Resolved]
  - Vertigo [Recovered/Resolved with Sequelae]
  - Nausea [Recovered/Resolved with Sequelae]
  - Vision blurred [Recovered/Resolved with Sequelae]
  - Fall [Not Recovered/Not Resolved]
  - Ototoxicity [Not Recovered/Not Resolved]

NARRATIVE: CASE EVENT DATE: 20160312
